FAERS Safety Report 6241625-0 (Version None)
Quarter: 2009Q2

REPORT INFORMATION
  Report Type: 
  Country: None (occurrence: None)
  Receive Date: 20090623
  Receipt Date: 20041202
  Transmission Date: 20091009
  Serious: Yes (Hospitalization, Disabling)
  Sender: FDA-Public Use
  Company Number: BR-ROCHE-381493

PATIENT
  Sex: Male
  Weight: 45 kg

DRUGS (27)
  1. DACLIZUMAB [Suspect]
     Route: 042
     Dates: start: 20031021, end: 20031021
  2. DACLIZUMAB [Suspect]
     Route: 042
     Dates: start: 20031104, end: 20031216
  3. MYCOPHENOLATE MOFETIL [Suspect]
     Route: 048
     Dates: start: 20031020
  4. MYCOPHENOLATE MOFETIL [Suspect]
     Route: 048
     Dates: start: 20040922, end: 20041021
  5. MYCOPHENOLATE MOFETIL [Suspect]
     Route: 048
     Dates: start: 20041022, end: 20041118
  6. SIROLIMUS [Suspect]
     Route: 048
     Dates: start: 20041022, end: 20041118
  7. CYCLOSPORINE [Suspect]
     Route: 048
     Dates: start: 20031020, end: 20031201
  8. CYCLOSPORINE [Suspect]
     Route: 048
     Dates: start: 20031202, end: 20040726
  9. CYCLOSPORINE [Suspect]
     Route: 048
     Dates: start: 20040727, end: 20040929
  10. PREDNISONE [Suspect]
     Route: 048
     Dates: start: 20031020, end: 20031110
  11. PREDNISONE [Suspect]
     Route: 048
     Dates: start: 20031111, end: 20031117
  12. PREDNISONE [Suspect]
     Route: 048
     Dates: start: 20031118, end: 20031124
  13. PREDNISONE [Suspect]
     Route: 048
     Dates: start: 20031125, end: 20031201
  14. PREDNISONE [Suspect]
     Route: 048
     Dates: start: 20031202, end: 20031208
  15. PREDNISONE [Suspect]
     Route: 048
     Dates: start: 20031209, end: 20031215
  16. PREDNISONE [Suspect]
     Route: 048
     Dates: start: 20031216, end: 20040111
  17. PREDNISONE [Suspect]
     Route: 048
     Dates: start: 20040112, end: 20040308
  18. PREDNISONE [Suspect]
     Route: 048
     Dates: start: 20040309, end: 20041118
  19. PREDNISONE [Suspect]
     Route: 048
     Dates: start: 20041119, end: 20041120
  20. CAPTOPRIL [Concomitant]
     Route: 048
     Dates: start: 20040309
  21. SULFAMETHOXAZOLE AND TRIMETHOPRIM [Concomitant]
     Route: 048
     Dates: start: 20031024
  22. RANITIDINE [Concomitant]
     Route: 048
     Dates: start: 20031020
  23. ALLOPURINOL [Concomitant]
     Route: 048
     Dates: start: 20040601
  24. AMOXICILLIN [Concomitant]
     Route: 048
     Dates: start: 20031118, end: 20031125
  25. ATENOLOL [Concomitant]
     Route: 048
     Dates: start: 20031023, end: 20040406
  26. CEFAZOLIN [Concomitant]
     Route: 042
     Dates: start: 20031021, end: 20031024
  27. NIFEDIPINE [Concomitant]
     Route: 048
     Dates: start: 20031022, end: 20040308

REACTIONS (2)
  - DIARRHOEA [None]
  - GRAFT LOSS [None]
